FAERS Safety Report 17533949 (Version 1)
Quarter: 2020Q1

REPORT INFORMATION
  Report Type: Report from Study
  Country: PH (occurrence: PH)
  Receive Date: 20200312
  Receipt Date: 20200312
  Transmission Date: 20200409
  Serious: Yes (Death, Other)
  Sender: FDA-Public Use
  Company Number: PH-OTSUKA-2020_006899

PATIENT
  Age: 63 Year
  Sex: Female

DRUGS (3)
  1. ARIPIPRAZOLE. [Suspect]
     Active Substance: ARIPIPRAZOLE
     Indication: BIPOLAR DISORDER
     Dosage: 15 MG, BID
     Route: 048
     Dates: start: 201911, end: 201912
  2. LITHIUM. [Suspect]
     Active Substance: LITHIUM
     Indication: SLEEP DISORDER
     Dosage: 400 MG, UNK
     Route: 065
     Dates: start: 201912
  3. LITHIUM. [Suspect]
     Active Substance: LITHIUM
     Indication: HALLUCINATION, AUDITORY

REACTIONS (6)
  - Hallucination, auditory [Unknown]
  - Dyskinesia [Unknown]
  - Inappropriate schedule of product administration [Unknown]
  - Intestinal haemorrhage [Fatal]
  - Pneumonia [Fatal]
  - Insomnia [Unknown]

NARRATIVE: CASE EVENT DATE: 201911
